FAERS Safety Report 26133283 (Version 1)
Quarter: 2025Q4

REPORT INFORMATION
  Report Type: Spontaneous
  Country: CN (occurrence: CN)
  Receive Date: 20251209
  Receipt Date: 20251209
  Transmission Date: 20260118
  Serious: Yes (Hospitalization)
  Sender: Onesource Specialty Pharma
  Company Number: CN-STRIDES ARCOLAB LIMITED-2025OS001434

PATIENT
  Age: 65 Year
  Sex: Male

DRUGS (4)
  1. CETIRIZINE HYDROCHLORIDE [Suspect]
     Active Substance: CETIRIZINE HYDROCHLORIDE
     Indication: Rash
     Dosage: UNK
     Route: 065
  2. MEDROL [Suspect]
     Active Substance: METHYLPREDNISOLONE
     Indication: Rash
     Dosage: 12 MILLIGRAM, TID
     Route: 065
  3. APALUTAMIDE [Concomitant]
     Active Substance: APALUTAMIDE
     Indication: Prostate cancer metastatic
     Dosage: 240 MILLIGRAM, QD
     Route: 065
     Dates: start: 202203
  4. APALUTAMIDE [Concomitant]
     Active Substance: APALUTAMIDE
     Indication: Metastases to bone

REACTIONS (2)
  - Mucosal erosion [None]
  - Treatment noncompliance [Unknown]
